FAERS Safety Report 13203696 (Version 2)
Quarter: 2017Q1

REPORT INFORMATION
  Report Type: Spontaneous
  Country: US (occurrence: US)
  Receive Date: 20170209
  Receipt Date: 20170209
  Transmission Date: 20170428
  Serious: Yes (Other)
  Sender: FDA-Public Use
  Company Number: US-PFIZER INC-2017050232

PATIENT
  Age: 8 Year
  Sex: Male

DRUGS (1)
  1. CHILDRENS ROBITUSSIN COUGH LONG-ACTING [Suspect]
     Active Substance: DEXTROMETHORPHAN HYDROBROMIDE
     Dosage: UNK

REACTIONS (1)
  - Drug abuse [Unknown]
